FAERS Safety Report 10695860 (Version 2)
Quarter: 2015Q1

REPORT INFORMATION
  Report Type: Report from Study
  Country: CZ (occurrence: CZ)
  Receive Date: 20150107
  Receipt Date: 20150217
  Transmission Date: 20150721
  Serious: Yes (Hospitalization)
  Sender: FDA-Public Use
  Company Number: CZ-ABBVIE-15K-217-1328935-00

PATIENT
  Sex: Male
  Weight: 80 kg

DRUGS (4)
  1. HUMIRA [Suspect]
     Active Substance: ADALIMUMAB
     Indication: ANKYLOSING SPONDYLITIS
     Route: 065
     Dates: start: 20140901
  2. DICLOFENAC [Concomitant]
     Active Substance: DICLOFENAC
     Indication: ANKYLOSING SPONDYLITIS
     Dates: start: 200001, end: 201410
  3. SALAZOPYRINE [Concomitant]
     Active Substance: SULFASALAZINE
     Indication: ANKYLOSING SPONDYLITIS
     Dates: start: 201111, end: 201308
  4. SALAZOPYRINE [Concomitant]
     Active Substance: SULFASALAZINE
     Dates: start: 201402

REACTIONS (2)
  - Musculoskeletal stiffness [Recovered/Resolved]
  - Ankylosing spondylitis [Recovered/Resolved]

NARRATIVE: CASE EVENT DATE: 20141110
